FAERS Safety Report 5504855-9 (Version None)
Quarter: 2007Q4

REPORT INFORMATION
  Report Type: 
  Country: None (occurrence: None)
  Receive Date: 20071102
  Receipt Date: 20071029
  Transmission Date: 20080405
  Serious: Yes (Death, Hospitalization)
  Sender: FDA-Public Use
  Company Number: PHHO2007BR18015

PATIENT
  Age: 70 Year
  Sex: Female

DRUGS (1)
  1. ZELNORM [Suspect]
     Route: 048

REACTIONS (5)
  - DIABETES MELLITUS [None]
  - FALL [None]
  - HEPATIC CYST [None]
  - HEPATIC FAILURE [None]
  - SEPSIS [None]
